FAERS Safety Report 23947920 (Version 1)
Quarter: 2024Q2

REPORT INFORMATION
  Report Type: Spontaneous
  Country: JP (occurrence: JP)
  Receive Date: 20240606
  Receipt Date: 20240606
  Transmission Date: 20240715
  Serious: Yes (Other)
  Sender: FDA-Public Use
  Company Number: JP-002147023-NVSJ2022JP275637

PATIENT
  Sex: Male
  Weight: 50 kg

DRUGS (4)
  1. BEOVU [Suspect]
     Active Substance: BROLUCIZUMAB-DBLL
     Indication: Retinal neovascularisation
     Dosage: 6 MG
     Route: 031
     Dates: start: 20220315, end: 20220315
  2. BEOVU [Suspect]
     Active Substance: BROLUCIZUMAB-DBLL
     Indication: Neovascular age-related macular degeneration
     Dosage: 6 MG
     Route: 031
     Dates: start: 20220510, end: 20220510
  3. BEOVU [Suspect]
     Active Substance: BROLUCIZUMAB-DBLL
     Dosage: 6 MG
     Route: 031
     Dates: start: 20220705, end: 20220705
  4. BEOVU [Suspect]
     Active Substance: BROLUCIZUMAB-DBLL
     Dosage: 6 MG
     Route: 031
     Dates: start: 20220906, end: 20220906

REACTIONS (9)
  - Scleritis [Recovered/Resolved]
  - Pain [Unknown]
  - Blindness transient [Recovering/Resolving]
  - Scleral hyperaemia [Recovering/Resolving]
  - Intraocular pressure increased [Recovered/Resolved]
  - Visual impairment [Unknown]
  - Ocular discomfort [Unknown]
  - Neovascular age-related macular degeneration [Recovering/Resolving]
  - Disease progression [Recovering/Resolving]

NARRATIVE: CASE EVENT DATE: 20220101
